FAERS Safety Report 5460084-9 (Version None)
Quarter: 2007Q3

REPORT INFORMATION
  Report Type: 
  Country: None (occurrence: None)
  Receive Date: 20070919
  Receipt Date: 20070824
  Transmission Date: 20080115
  Serious: Yes (Hospitalization)
  Sender: FDA-Public Use
  Company Number: CH-ELI_LILLY_AND_COMPANY-CH200708005271

PATIENT
  Age: 63 Year
  Sex: Male
  Weight: 80 kg

DRUGS (6)
  1. CIALIS [Suspect]
     Indication: SEXUAL DYSFUNCTION
     Dosage: 10 MG, UNKNOWN
     Route: 048
     Dates: start: 20070424, end: 20070424
  2. ASPIRIN [Concomitant]
     Indication: MYOCARDIAL ISCHAEMIA
     Dosage: 100 MG, DAILY (1/D)
     Route: 048
     Dates: start: 19960101
  3. CONCOR COR [Concomitant]
     Indication: MYOCARDIAL ISCHAEMIA
     Dosage: 5 MG, DAILY (1/D)
     Route: 048
     Dates: start: 19960101
  4. COVERSUM COMBI /01421201/ [Concomitant]
     Indication: MYOCARDIAL ISCHAEMIA
     Route: 048
     Dates: start: 19960101
  5. PLAVIX [Concomitant]
     Indication: MYOCARDIAL ISCHAEMIA
     Dosage: 75 MG, DAILY (1/D)
     Route: 048
  6. CRESTOR [Concomitant]
     Indication: MYOCARDIAL ISCHAEMIA
     Dosage: 10 MG, DAILY (1/D)
     Route: 048
     Dates: start: 20070317

REACTIONS (1)
  - VENTRICULAR TACHYCARDIA [None]
